FAERS Safety Report 25127354 (Version 1)
Quarter: 2025Q1

REPORT INFORMATION
  Report Type: Spontaneous
  Country: NO (occurrence: NO)
  Receive Date: 20250327
  Receipt Date: 20250327
  Transmission Date: 20250409
  Serious: Yes (Other)
  Sender: ACCORD
  Company Number: NO-Accord-475368

PATIENT
  Sex: Female

DRUGS (2)
  1. ARIPIPRAZOLE [Suspect]
     Active Substance: ARIPIPRAZOLE
     Indication: Bipolar disorder
     Dates: start: 20240103, end: 20240815
  2. LITHIUM [Concomitant]
     Active Substance: LITHIUM

REACTIONS (6)
  - Blood pressure decreased [Unknown]
  - Syncope [Unknown]
  - Fall [Unknown]
  - Craniofacial fracture [Unknown]
  - Tooth injury [Unknown]
  - Hypoaesthesia [Unknown]

NARRATIVE: CASE EVENT DATE: 20240126
